FAERS Safety Report 5320122-0 (Version None)
Quarter: 2007Q2

REPORT INFORMATION
  Report Type: 
  Country: None (occurrence: None)
  Receive Date: 20070503
  Receipt Date: 20070409
  Transmission Date: 20071010
  Serious: No
  Sender: FDA-Public Use
  Company Number: D-07-0025

PATIENT
  Age: 58 Year
  Sex: Male

DRUGS (10)
  1. JANTOVEN [Suspect]
     Indication: THROMBOSIS
     Dosage: SEE IMAGE
     Route: 048
     Dates: start: 20070404, end: 20070409
  2. WARFARIN SODIUM [Suspect]
     Indication: THROMBOSIS
     Dosage: 7.5 MG, QD, PO
     Route: 048
     Dates: start: 20070330, end: 20070403
  3. COMTAN [Suspect]
     Indication: PARKINSON'S DISEASE
     Dosage: 200 MG, QID, PO
     Route: 048
  4. TRIHEXYPHENIDYL 2 MG (MFR UNK) [Suspect]
     Indication: PARKINSON'S DISEASE
     Dosage: 2 MG, BID, PO
     Route: 048
  5. SINEMET [Suspect]
     Indication: PARKINSON'S DISEASE
     Dosage: 6.5 TABS, QD, PO
     Route: 048
  6. SINEMET CR [Suspect]
     Indication: PARKINSON'S DISEASE
     Dosage: 2 TABS, QD, PO
     Route: 048
  7. AMBIEN [Concomitant]
  8. REQUIP [Concomitant]
  9. CALCIUM CHLORIDE [Concomitant]
  10. MULTI-VITAMIN [Concomitant]

REACTIONS (7)
  - ASTHENIA [None]
  - DYSSTASIA [None]
  - INSOMNIA [None]
  - INTERNATIONAL NORMALISED RATIO INCREASED [None]
  - MUSCLE RIGIDITY [None]
  - PAIN [None]
  - RESTLESSNESS [None]
